FAERS Safety Report 6282352-3 (Version None)
Quarter: 2009Q3

REPORT INFORMATION
  Report Type: 
  Country: None (occurrence: None)
  Receive Date: 20090724
  Receipt Date: 20090714
  Transmission Date: 20100115
  Serious: Yes (Hospitalization)
  Sender: FDA-Public Use
  Company Number: CA-JNJFOC-20090704427

PATIENT
  Sex: Female
  Weight: 73 kg

DRUGS (11)
  1. REMICADE [Suspect]
     Route: 042
  2. REMICADE [Suspect]
     Indication: CROHN'S DISEASE
     Route: 042
  3. SOLU-CORTEF [Concomitant]
     Indication: PREMEDICATION
     Route: 042
  4. PENTASA [Concomitant]
  5. PURINETHOL [Concomitant]
  6. ADALAT CC [Concomitant]
  7. METOPROLOL SUCCINATE [Concomitant]
  8. PANTOPRAZOLE SODIUM [Concomitant]
  9. DURAGESIC-100 [Concomitant]
     Route: 062
  10. EMPRACET [Concomitant]
  11. TYLENOL [Concomitant]

REACTIONS (1)
  - ATRIAL FIBRILLATION [None]
